FAERS Safety Report 8463216-3 (Version None)
Quarter: 2012Q2

REPORT INFORMATION
  Report Type: 
  Country: None (occurrence: None)
  Receive Date: 20120323
  Receipt Date: 20111108
  Transmission Date: 20120825
  Serious: Yes (Hospitalization, Other)
  Sender: FDA-Public Use
  Company Number: 163-21880-11311150

PATIENT
  Age: 71 Year
  Sex: Male
  Weight: 97.5234 kg

DRUGS (8)
  1. INSULIN (INSULIN) (UNKNOWN) [Suspect]
     Indication: TYPE 1 DIABETES MELLITUS
     Dosage: 3.5 MG, AS NEEDED,
     Dates: start: 20111024
  2. ACYCLOVIR [Concomitant]
  3. DEXAMETHASONE [Suspect]
     Indication: CHEMOTHERAPY
     Dosage: 20 MG, DAILY
     Dates: start: 20111024
  4. CIPROFLOXACIN [Concomitant]
  5. VELCADE [Suspect]
     Indication: MULTIPLE MYELOMA
     Dosage: 3.5 MG, DAY 1, 4, 8, 11 Q 21 DAYS,
     Dates: start: 20111024
  6. REVLIMID [Suspect]
     Indication: MULTIPLE MYELOMA
     Dosage: SEE IMAGE
     Route: 048
     Dates: start: 20110601
  7. REVLIMID [Suspect]
     Indication: MULTIPLE MYELOMA
     Dosage: SEE IMAGE
     Route: 048
     Dates: start: 20110916
  8. VANCOMYCIN [Concomitant]

REACTIONS (3)
  - STAPHYLOCOCCAL INFECTION [None]
  - PLATELET COUNT DECREASED [None]
  - WHITE BLOOD CELL COUNT DECREASED [None]
